FAERS Safety Report 11533562 (Version 1)
Quarter: 2015Q3

REPORT INFORMATION
  Report Type: Spontaneous
  Country: US (occurrence: US)
  Receive Date: 20150921
  Receipt Date: 20150921
  Transmission Date: 20151125
  Serious: Yes (Hospitalization)
  Sender: FDA-Public Use
  Company Number: US-SIGMA-TAU US-2014STPI000714

PATIENT
  Age: 64 Year
  Sex: Male
  Weight: 97.51 kg

DRUGS (4)
  1. MATULANE [Suspect]
     Active Substance: PROCARBAZINE HYDROCHLORIDE
     Indication: LYMPHOMA
     Dosage: 50 MG, OTHER
     Route: 048
     Dates: start: 20141119, end: 20141124
  2. CYTOXAN [Concomitant]
     Active Substance: CYCLOPHOSPHAMIDE
     Indication: LYMPHOMA
     Dosage: 1280 MG, OTHER
     Route: 042
     Dates: start: 20141118, end: 20141118
  3. RITUXAN [Concomitant]
     Active Substance: RITUXIMAB
     Indication: LYMPHOMA
     Dosage: 795 MG, OTHER
     Route: 042
     Dates: start: 20141118, end: 20141124
  4. ETOPOSIDE. [Concomitant]
     Active Substance: ETOPOSIDE
     Indication: LYMPHOMA
     Dosage: 149 MG, UNK
     Route: 042
     Dates: start: 20141118, end: 20141120

REACTIONS (4)
  - White blood cell count decreased [Unknown]
  - Pleural effusion [Recovered/Resolved]
  - Infection [Unknown]
  - Peripheral swelling [Unknown]

NARRATIVE: CASE EVENT DATE: 20141117
